FAERS Safety Report 4591233-2 (Version None)
Quarter: 2005Q1

REPORT INFORMATION
  Report Type: 
  Country: None (occurrence: None)
  Receive Date: 20050222
  Receipt Date: 20050214
  Transmission Date: 20050727
  Serious: Yes (Hospitalization, Other)
  Sender: FDA-Public Use
  Company Number: 2005-02-0930

PATIENT
  Age: 71 Year
  Sex: Female

DRUGS (5)
  1. IPATROPIUM BROMIDE [Suspect]
     Indication: BRONCHIAL INFECTION
     Dosage: 0.5 MG QID INHALATION
     Route: 055
  2. FLUPHENAZINE INJECTABLE [Suspect]
     Indication: BRONCHIAL INFECTION
     Dosage: 75 MG MONTHLY INTRAMUSCULAR
     Route: 030
  3. AMOXICILLIN AND CLAVULANATE POTASSIUM [Concomitant]
  4. BRONCHIAL INFECTION [Concomitant]
  5. SALBUTAMOL SULPHATE NEBULIZER SUSPENSION [Concomitant]

REACTIONS (4)
  - ACUTE RESPIRATORY FAILURE [None]
  - ATELECTASIS [None]
  - HIATUS HERNIA [None]
  - IMPAIRED GASTRIC EMPTYING [None]
